FAERS Safety Report 19674320 (Version 3)
Quarter: 2023Q1

REPORT INFORMATION
  Report Type: Report from Study
  Country: US (occurrence: US)
  Receive Date: 20210809
  Receipt Date: 20230112
  Transmission Date: 20230418
  Serious: Yes (Death, Other)
  Sender: FDA-Public Use
  Company Number: US-ACADIA PHARMACEUTICALS INC.-ACA-2021-PIM-002630

PATIENT
  Age: 86 Year
  Sex: Female

DRUGS (20)
  1. NUPLAZID [Suspect]
     Active Substance: PIMAVANSERIN TARTRATE
     Indication: Parkinson^s disease
     Dosage: 34 MILLIGRAM, QD
     Route: 048
     Dates: start: 20210216
  2. BIOTIN [Concomitant]
     Active Substance: BIOTIN
  3. BUSPIRONE [Concomitant]
     Active Substance: BUSPIRONE HYDROCHLORIDE
  4. DULOXETINE [Concomitant]
     Active Substance: DULOXETINE
  5. KLONOPIN [Concomitant]
     Active Substance: CLONAZEPAM
  6. LIPITOR [Concomitant]
     Active Substance: ATORVASTATIN CALCIUM
  7. NEURONTIN [Concomitant]
     Active Substance: GABAPENTIN
  8. NORVASC [Concomitant]
     Active Substance: AMLODIPINE BESYLATE
  9. NOURIANZ [Concomitant]
     Active Substance: ISTRADEFYLLINE
  10. OMEGA-3 FATTY ACIDS [Concomitant]
     Active Substance: OMEGA-3 FATTY ACIDS
  11. BIFIDOBACTERIUM ANIMALIS LACTIS [Concomitant]
     Active Substance: BIFIDOBACTERIUM ANIMALIS LACTIS
  12. PROLIA [Concomitant]
     Active Substance: DENOSUMAB
  13. OMEPRAZOLE [Concomitant]
     Active Substance: OMEPRAZOLE
  14. RYTARY [Concomitant]
     Active Substance: CARBIDOPA\LEVODOPA
  15. TYLENOL [Concomitant]
     Active Substance: ACETAMINOPHEN
  16. ULTRAM [Concomitant]
     Active Substance: TRAMADOL HYDROCHLORIDE
  17. VITAMIN C [Concomitant]
     Active Substance: ASCORBIC ACID
  18. CHOLECALCIFEROL [Concomitant]
     Active Substance: CHOLECALCIFEROL
  19. ZINC GLUCONATE [Concomitant]
     Active Substance: ZINC GLUCONATE
  20. LEXAPRO [Concomitant]
     Active Substance: ESCITALOPRAM OXALATE

REACTIONS (3)
  - Death [Fatal]
  - Asthenia [Not Recovered/Not Resolved]
  - Hallucination [Not Recovered/Not Resolved]

NARRATIVE: CASE EVENT DATE: 20210715
